FAERS Safety Report 16646982 (Version 1)
Quarter: 2019Q3

REPORT INFORMATION
  Report Type: Spontaneous
  Country: GB (occurrence: GB)
  Receive Date: 20190730
  Receipt Date: 20190730
  Transmission Date: 20191004
  Serious: Yes (Other)
  Sender: FDA-Public Use
  Company Number: GB-PFIZER INC-2019319251

PATIENT
  Age: 42 Year
  Sex: Female
  Weight: 70 kg

DRUGS (4)
  1. EPILIM [Interacting]
     Active Substance: VALPROATE SODIUM
     Indication: EPILEPSY
     Dosage: 1000 MG, DAILY
     Route: 048
  2. MEROPENEM. [Suspect]
     Active Substance: MEROPENEM
     Indication: ABDOMINAL INFECTION
     Dosage: 6 G, DAILY
     Route: 042
     Dates: start: 20190609, end: 20190610
  3. TRAMADOL. [Concomitant]
     Active Substance: TRAMADOL
     Dosage: UNK
  4. MEROPENEM. [Interacting]
     Active Substance: MEROPENEM
     Dosage: 3 G, DAILY
     Route: 042
     Dates: start: 20190610

REACTIONS (3)
  - Epilepsy [Recovered/Resolved]
  - Labelled drug-drug interaction medication error [Unknown]
  - Convulsive threshold lowered [Unknown]

NARRATIVE: CASE EVENT DATE: 20190618
